FAERS Safety Report 5217630-X (Version None)
Quarter: 2007Q1

REPORT INFORMATION
  Report Type: 
  Country: None (occurrence: None)
  Receive Date: 20070124
  Receipt Date: 20060616
  Transmission Date: 20070707
  Serious: No
  Sender: FDA-Public Use
  Company Number: US-GLAXOSMITHKLINE-A0607581A

PATIENT
  Age: 77 Year
  Sex: Male

DRUGS (10)
  1. PAXIL CR [Suspect]
     Indication: DEPRESSION
     Dosage: 37.5MG PER DAY
     Route: 048
     Dates: start: 20060501
  2. XANAX [Concomitant]
  3. GLUCOTROL [Concomitant]
  4. PLENDIL [Concomitant]
  5. AVAPRO [Concomitant]
  6. FLOMAX [Concomitant]
  7. PREVACID [Concomitant]
  8. AMBIEN [Concomitant]
  9. ZOCOR [Concomitant]
  10. HYDROCHLOROTHIAZIDE [Concomitant]

REACTIONS (13)
  - ANXIETY [None]
  - APATHY [None]
  - CHILLS [None]
  - DECREASED APPETITE [None]
  - DECREASED INTEREST [None]
  - DRUG INEFFECTIVE [None]
  - HYPERHIDROSIS [None]
  - MEMORY IMPAIRMENT [None]
  - MENTAL STATUS CHANGES [None]
  - MOOD ALTERED [None]
  - SENSORY DISTURBANCE [None]
  - SKIN DISORDER [None]
  - TEMPERATURE REGULATION DISORDER [None]
